FAERS Safety Report 21264492 (Version 2)
Quarter: 2022Q3

REPORT INFORMATION
  Report Type: Report from Study
  Country: US (occurrence: US)
  Receive Date: 20220829
  Receipt Date: 20220903
  Transmission Date: 20221027
  Serious: Yes (Other)
  Sender: FDA-Public Use
  Company Number: US-NOVARTISTESTPH-NVSC2022US193727

PATIENT
  Age: 58 Year
  Sex: Female

DRUGS (2)
  1. GILENYA [Suspect]
     Active Substance: FINGOLIMOD HYDROCHLORIDE
     Indication: Multiple sclerosis relapse
     Dosage: 0.5 MG, QD
     Route: 048
  2. GILENYA [Suspect]
     Active Substance: FINGOLIMOD HYDROCHLORIDE
     Dosage: 0.5 MG, QD
     Route: 048
     Dates: start: 20180209

REACTIONS (6)
  - Multiple sclerosis relapse [Unknown]
  - Gait disturbance [Unknown]
  - Trigeminal neuralgia [Unknown]
  - Speech disorder [Unknown]
  - Fatigue [Unknown]
  - Oral pain [Unknown]

NARRATIVE: CASE EVENT DATE: 20220901
